FAERS Safety Report 5629680-X (Version None)
Quarter: 2008Q1

REPORT INFORMATION
  Report Type: 
  Country: None (occurrence: None)
  Receive Date: 20080218
  Receipt Date: 20080211
  Transmission Date: 20080703
  Serious: Yes (Death)
  Sender: FDA-Public Use
  Company Number: B0508338A

PATIENT
  Sex: Male

DRUGS (1)
  1. ARIXTRA [Suspect]
     Indication: BEDRIDDEN
     Dosage: 2.5MG PER DAY
     Route: 058
     Dates: start: 20071201

REACTIONS (3)
  - AORTIC ANEURYSM RUPTURE [None]
  - PALLOR [None]
  - SUDDEN DEATH [None]
